FAERS Safety Report 4507783-0 (Version None)
Quarter: 2004Q4

REPORT INFORMATION
  Report Type: 
  Country: None (occurrence: None)
  Receive Date: 20041123
  Receipt Date: 20041117
  Transmission Date: 20050328
  Serious: Yes (Other)
  Sender: FDA-Public Use
  Company Number: AU-ABBOTT-04P-008-0280882-00

PATIENT
  Sex: Female

DRUGS (2)
  1. EPILIM TABLETS [Suspect]
     Indication: EPILEPSY
     Route: 048
     Dates: start: 20040321
  2. EUGYNON [Interacting]
     Indication: CONTRACEPTION
     Route: 048
     Dates: start: 20040803, end: 20040915

REACTIONS (2)
  - CONVULSION [None]
  - DRUG INTERACTION [None]
